FAERS Safety Report 10640635 (Version 1)
Quarter: 2014Q4

REPORT INFORMATION
  Report Type: Spontaneous
  Country: US (occurrence: None)
  Receive Date: 20141205
  Receipt Date: 20141205
  Transmission Date: 20150529
  Serious: Yes (Other)
  Sender: FDA-Public Use
  Company Number: US-H14001-14-01652

PATIENT
  Age: 74 Year
  Sex: Female
  Weight: 55.34 kg

DRUGS (3)
  1. BORTEZOMIB (BORTEZOMIB) [Suspect]
     Active Substance: BORTEZOMIB
     Indication: PLASMA CELL MYELOMA
     Dosage: ON DAYS 1, 8, 15, AND 22 (NOT OTHERWISE SPECIFIED)
     Route: 058
     Dates: start: 20140728, end: 20140919
  2. CYCLOPHOSPHAMIDE. [Suspect]
     Active Substance: CYCLOPHOSPHAMIDE
     Indication: PLASMA CELL MYELOMA
     Dosage: ON DAYS 1, 8, 15, AND 22 (NOT OTHERWISE SPECIFIED)
     Route: 042
     Dates: start: 20140728, end: 20140919
  3. DEXAMETHASONE. [Suspect]
     Active Substance: DEXAMETHASONE
     Indication: PLASMA CELL MYELOMA
     Dosage: ON DAYS 1, 8, 15, AND 22 (NOT OTHERWISE SPECIFIED)
     Route: 042
     Dates: start: 20140728, end: 20140919

REACTIONS (5)
  - Atelectasis [None]
  - Pleural effusion [None]
  - Cough [None]
  - Confusional state [None]
  - Pneumonia [None]

NARRATIVE: CASE EVENT DATE: 20141002
